FAERS Safety Report 7529165-X (Version None)
Quarter: 2011Q2

REPORT INFORMATION
  Report Type: 
  Country: None (occurrence: None)
  Receive Date: 20110607
  Receipt Date: 20050321
  Transmission Date: 20111010
  Serious: Yes (Death, Hospitalization)
  Sender: FDA-Public Use
  Company Number: PHHO2005CA02042

PATIENT
  Sex: Female

DRUGS (3)
  1. VALPROIC ACID [Concomitant]
  2. ATIVAN [Concomitant]
  3. CLOZARIL [Suspect]
     Dates: start: 19961216

REACTIONS (3)
  - POST PROCEDURAL COMPLICATION [None]
  - FALL [None]
  - ASPIRATION [None]
